FAERS Safety Report 17226760 (Version 1)
Quarter: 2020Q1

REPORT INFORMATION
  Report Type: Report from Study
  Country: US (occurrence: US)
  Receive Date: 20200102
  Receipt Date: 20200102
  Transmission Date: 20200409
  Serious: No
  Sender: FDA-Public Use
  Company Number: US-AGIOS-1912US01524

PATIENT

DRUGS (5)
  1. TIBSOVO [Suspect]
     Active Substance: IVOSIDENIB
     Indication: ACUTE MYELOID LEUKAEMIA
     Dosage: 250 MILLIGRAM, 2 TABLETS (500MG), QD
     Route: 048
     Dates: start: 20180912
  2. GILTERITINIB [Concomitant]
     Active Substance: GILTERITINIB
     Indication: PRODUCT USED FOR UNKNOWN INDICATION
     Dosage: 120 MILLIGRAM, QD
  3. GILTERITINIB [Concomitant]
     Active Substance: GILTERITINIB
     Dosage: 80 MILLIGRAM, QD
  4. METOPROLOL. [Concomitant]
     Active Substance: METOPROLOL
     Indication: HYPERTENSION
     Dosage: 120 MILLIGRAM
     Route: 065
  5. METOPROLOL. [Concomitant]
     Active Substance: METOPROLOL
     Dosage: 80 MILLIGRAM
     Route: 065

REACTIONS (3)
  - Insomnia [Recovered/Resolved]
  - Memory impairment [Unknown]
  - Blood pressure increased [Unknown]
